FAERS Safety Report 18220134 (Version 1)
Quarter: 2020Q3

REPORT INFORMATION
  Report Type: Spontaneous
  Country: FR (occurrence: FR)
  Receive Date: 20200902
  Receipt Date: 20200902
  Transmission Date: 20201103
  Serious: Yes (Hospitalization)
  Sender: FDA-Public Use
  Company Number: FR-CADILA HEALTHCARE LIMITED-FR-ZYDUS-024799

PATIENT

DRUGS (5)
  1. RAMIPRIL. [Suspect]
     Active Substance: RAMIPRIL
     Indication: TOXICITY TO VARIOUS AGENTS
     Dosage: 1 DOSAGE FORM,IN TOTAL,(INTERVAL :1 TOTAL)
     Route: 048
     Dates: start: 20180606, end: 20180606
  2. ZOPICLONE [Suspect]
     Active Substance: ZOPICLONE
     Indication: TOXICITY TO VARIOUS AGENTS
     Dosage: 2 DOSAGE FORM,IN TOTAL,(INTERVAL :1 TOTAL)
     Route: 048
     Dates: start: 20180606, end: 20180606
  3. METFORMIN [Suspect]
     Active Substance: METFORMIN HYDROCHLORIDE
     Indication: TOXICITY TO VARIOUS AGENTS
     Dosage: 2 DOSAGE FORM,IN TOTAL,(INTERVAL :1 TOTAL)
     Route: 048
     Dates: start: 20180606, end: 20180606
  4. ENALAPRIL [Suspect]
     Active Substance: ENALAPRIL
     Indication: TOXICITY TO VARIOUS AGENTS
     Dosage: 2 DOSAGE FORM,(INTERVAL :1 TOTAL)
     Route: 048
     Dates: start: 20180606, end: 20180606
  5. ZOLPIDEM [Suspect]
     Active Substance: ZOLPIDEM TARTRATE
     Indication: TOXICITY TO VARIOUS AGENTS
     Dosage: 1 DOSAGE FORM,IN TOTAL,(INTERVAL :1 TOTAL)
     Route: 048
     Dates: start: 20180606, end: 20180606

REACTIONS (1)
  - Tachycardia [Recovered/Resolved]

NARRATIVE: CASE EVENT DATE: 20180606
